FAERS Safety Report 9812139 (Version 3)
Quarter: 2014Q1

REPORT INFORMATION
  Report Type: Report from Study
  Country: DE (occurrence: DE)
  Receive Date: 20140111
  Receipt Date: 20140221
  Transmission Date: 20141002
  Serious: Yes (Hospitalization)
  Sender: FDA-Public Use
  Company Number: DE-ROCHE-1277774

PATIENT
  Age: 61 Year
  Sex: Male
  Weight: 70.4 kg

DRUGS (20)
  1. BEVACIZUMAB [Suspect]
     Indication: COLON CANCER
     Route: 042
     Dates: start: 20130902, end: 20130902
  2. BEVACIZUMAB [Suspect]
     Indication: RECTAL CANCER
  3. BEVACIZUMAB [Suspect]
     Indication: COLON CANCER
  4. 5-FLUOROURACIL [Suspect]
     Indication: COLON CANCER
     Route: 042
     Dates: start: 20130902, end: 20130902
  5. 5-FLUOROURACIL [Suspect]
     Indication: COLON CANCER
  6. IRINOTECAN [Suspect]
     Indication: COLON CANCER
     Route: 042
     Dates: start: 20130902, end: 20130902
  7. IRINOTECAN [Suspect]
     Indication: COLON CANCER
  8. PANTOZOL (GERMANY) [Concomitant]
     Route: 065
     Dates: start: 20130902
  9. CLEXANE [Concomitant]
     Indication: THROMBOSIS PROPHYLAXIS
     Route: 058
     Dates: start: 20130917, end: 20130920
  10. CLEXANE [Concomitant]
     Route: 065
     Dates: start: 20131224, end: 20131230
  11. CLEXANE [Concomitant]
     Route: 058
     Dates: start: 20140218
  12. REMESTAN [Concomitant]
     Indication: SLEEP DISORDER
     Dosage: AS REQUIRED.
     Route: 048
     Dates: start: 20130917, end: 20130918
  13. NOVAMINSULFON [Concomitant]
     Indication: PAIN
     Dosage: AS REQUIRED
     Route: 048
     Dates: start: 20130920, end: 20130920
  14. NOVAMINSULFON [Concomitant]
     Route: 048
     Dates: start: 20131227
  15. NOVAMINSULFON [Concomitant]
     Dosage: AS REQUIRED
     Route: 048
     Dates: start: 20140218
  16. PODOMEXEF [Concomitant]
     Indication: PYREXIA
     Route: 065
     Dates: start: 20130920, end: 20130925
  17. DOLO-DOBENDAN [Concomitant]
     Indication: OROPHARYNGEAL PAIN
     Route: 048
     Dates: start: 20130919, end: 20130919
  18. BEPANTHEN [Concomitant]
     Indication: OROPHARYNGEAL PAIN
     Route: 048
     Dates: start: 20130919, end: 20130919
  19. PROPOFOL [Concomitant]
     Indication: ANAESTHESIA
     Route: 065
     Dates: start: 20130919, end: 20130919
  20. METOCLOPRAMIDE [Concomitant]
     Indication: NAUSEA
     Dosage: AS REQUIRED
     Route: 065

REACTIONS (5)
  - Abdominal pain [Recovered/Resolved]
  - Abdominal pain [Recovered/Resolved]
  - Gastritis [Unknown]
  - Biliary tract disorder [Unknown]
  - Bile duct stenosis [Not Recovered/Not Resolved]
